FAERS Safety Report 8482123-3 (Version None)
Quarter: 2012Q3

REPORT INFORMATION
  Report Type: 
  Country: None (occurrence: None)
  Receive Date: 20120702
  Receipt Date: 20120622
  Transmission Date: 20120928
  Serious: Yes (Hospitalization, Other)
  Sender: FDA-Public Use
  Company Number: US-ASTRAZENECA-2012SE42644

PATIENT
  Age: 60 Year
  Sex: Female

DRUGS (4)
  1. NEXIUM [Suspect]
     Route: 048
  2. SEROQUEL [Suspect]
     Route: 048
  3. HALDOL [Suspect]
     Route: 065
  4. UNKNOWN ANTIBIOTIC [Suspect]
     Route: 065

REACTIONS (7)
  - BLOOD POTASSIUM DECREASED [None]
  - BLOOD SODIUM DECREASED [None]
  - GASTROENTERITIS VIRAL [None]
  - DROOLING [None]
  - MALAISE [None]
  - DRUG DOSE OMISSION [None]
  - POSTURE ABNORMAL [None]
